FAERS Safety Report 11438265 (Version 1)
Quarter: 2015Q3

REPORT INFORMATION
  Report Type: Spontaneous
  Country: IN (occurrence: IN)
  Receive Date: 20150901
  Receipt Date: 20150901
  Transmission Date: 20151125
  Serious: Yes (Other)
  Sender: FDA-Public Use
  Company Number: IN-AUROBINDO-AUR-APL-2015-07811

PATIENT
  Age: 40 Year
  Sex: Female

DRUGS (1)
  1. DIVALPROEX 500MG [Suspect]
     Active Substance: DIVALPROEX SODIUM
     Indication: MYOCLONUS
     Dosage: 1200 MG, DAILY
     Route: 065

REACTIONS (1)
  - Lipoma [Unknown]
